FAERS Safety Report 15108281 (Version 6)
Quarter: 2020Q1

REPORT INFORMATION
  Report Type: Report from Study
  Country: GB (occurrence: GB)
  Receive Date: 20180705
  Receipt Date: 20200305
  Transmission Date: 20200409
  Serious: Yes (Other)
  Sender: FDA-Public Use
  Company Number: GB-BRISTOL-MYERS SQUIBB COMPANY-BMS-2017-093835

PATIENT
  Age: 60 Year
  Sex: Female

DRUGS (1)
  1. ABATACEPT [Suspect]
     Active Substance: ABATACEPT
     Indication: RHEUMATOID ARTHRITIS
     Dosage: 125 MILLIGRAM, QWK
     Route: 058
     Dates: start: 20131219

REACTIONS (6)
  - Adverse event [Unknown]
  - Fall [Unknown]
  - Aphasia [Unknown]
  - Bone disorder [Unknown]
  - Gait disturbance [Unknown]
  - Limb injury [Unknown]

NARRATIVE: CASE EVENT DATE: 20171007
